FAERS Safety Report 17188443 (Version 1)
Quarter: 2019Q4

REPORT INFORMATION
  Report Type: Spontaneous
  Country: NL (occurrence: NL)
  Receive Date: 20191222
  Receipt Date: 20191222
  Transmission Date: 20200122
  Serious: Yes (Death)
  Sender: FDA-Public Use
  Company Number: NL-ACTELION-A-CH2019-199390

PATIENT

DRUGS (2)
  1. SILDENAFIL. [Concomitant]
     Active Substance: SILDENAFIL
     Route: 048
  2. BOSENTAN. [Suspect]
     Active Substance: BOSENTAN
     Indication: PULMONARY HYPERTENSION
     Route: 048

REACTIONS (4)
  - General physical health deterioration [Unknown]
  - Headache [Unknown]
  - Dizziness [Unknown]
  - Death [Fatal]
